FAERS Safety Report 19392018 (Version 2)
Quarter: 2021Q2

REPORT INFORMATION
  Report Type: Spontaneous
  Country: US (occurrence: US)
  Receive Date: 20210608
  Receipt Date: 20210617
  Transmission Date: 20210717
  Serious: Yes (Other)
  Sender: FDA-Public Use
  Company Number: US-PFIZER INC-2021454382

PATIENT
  Age: 58 Year
  Sex: Female

DRUGS (3)
  1. XELJANZ XR [Suspect]
     Active Substance: TOFACITINIB CITRATE
     Indication: RHEUMATOID ARTHRITIS
     Dosage: 11 MG, 1X/DAY
     Route: 048
     Dates: start: 20210416
  2. PREDNISONE. [Concomitant]
     Active Substance: PREDNISONE
     Dosage: 3 DF, DAILY (THREE PILLS A DAY )
     Dates: start: 202104
  3. PREDNISONE. [Concomitant]
     Active Substance: PREDNISONE
     Dosage: 1 DF, 2X/DAY (ONE TABLET, TWICE DAILY)

REACTIONS (5)
  - Anxiety [Unknown]
  - Rheumatoid arthritis [Unknown]
  - Memory impairment [Unknown]
  - Pain in extremity [Unknown]
  - Peripheral swelling [Recovering/Resolving]

NARRATIVE: CASE EVENT DATE: 20210416
